FAERS Safety Report 7369523-X (Version None)
Quarter: 2011Q1

REPORT INFORMATION
  Report Type: 
  Country: None (occurrence: None)
  Receive Date: 20110317
  Receipt Date: 20110317
  Transmission Date: 20110831
  Serious: Yes (Life-Threatening, Hospitalization, Other)
  Sender: FDA-Public Use
  Company Number: None

PATIENT
  Age: 81 Year
  Sex: Male
  Weight: 90.7194 kg

DRUGS (1)
  1. COLGATE [Suspect]
     Indication: TOOTH DISORDER
     Dosage: PEA SIZE 3 TIMES DAILY, DONT RINSE EXPECTORATE ONLY
     Dates: start: 20100306, end: 20100718

REACTIONS (14)
  - MALAISE [None]
  - HEADACHE [None]
  - VISUAL IMPAIRMENT [None]
  - DRUG WITHDRAWAL SYNDROME [None]
  - VISUAL ACUITY REDUCED [None]
  - PRURITUS GENERALISED [None]
  - RASH [None]
  - GINGIVAL BLEEDING [None]
  - FLATULENCE [None]
  - POLLAKIURIA [None]
  - VOMITING [None]
  - NAUSEA [None]
  - PARAESTHESIA [None]
  - ABDOMINAL DISTENSION [None]
